FAERS Safety Report 26165647 (Version 1)
Quarter: 2025Q4

REPORT INFORMATION
  Report Type: Report from Study
  Country: US (occurrence: US)
  Receive Date: 20251216
  Receipt Date: 20251216
  Transmission Date: 20260117
  Serious: Yes (Hospitalization, Other)
  Sender: BAUSCH AND LOMB
  Company Number: US-BAUSCH-BH-2025-022201

PATIENT
  Age: 75 Year
  Sex: Female

DRUGS (22)
  1. XIFAXAN [Suspect]
     Active Substance: RIFAXIMIN
     Indication: Hepatic cirrhosis
     Route: 048
     Dates: start: 2021, end: 2024
  2. XIFAXAN [Suspect]
     Active Substance: RIFAXIMIN
     Indication: Hepatic encephalopathy
     Route: 048
     Dates: start: 2024
  3. GLUCOPHAGE XR [Concomitant]
     Active Substance: METFORMIN HYDROCHLORIDE
     Indication: Product used for unknown indication
     Dosage: TAKE 2 TABLETS (1000 MG TOTAL) BY MOUTH DAILY
     Route: 048
  4. XANAX [Concomitant]
     Active Substance: ALPRAZOLAM
     Indication: Sleep disorder
     Dosage: TAKE 1 TABLET (0.25 MG TOTAL) BY MOUTH NIGHTLY AS NEEDED FOR SLEEP. THE LESS YOU NEED TO USE THE BET
     Route: 048
  5. DUONEB [Concomitant]
     Active Substance: ALBUTEROL SULFATE\IPRATROPIUM BROMIDE
     Indication: Product used for unknown indication
     Dosage: 0.5-2.5 MG/3 ML, TAKE 3ML BY NEBULISATION 3 TIMES A DAY
     Route: 055
  6. DESYREL [Concomitant]
     Active Substance: TRAZODONE HYDROCHLORIDE
     Indication: Sleep disorder
     Dosage: TAKE 1 TABLET (50 MG 30 TABLET TOTAL) BY MOUTH NIGHTLY AS NEEDED FOR?SLEEP OR DEPRESSION. HOLD DOSE
     Route: 048
  7. DESYREL [Concomitant]
     Active Substance: TRAZODONE HYDROCHLORIDE
     Indication: Depression
  8. LASIX [Concomitant]
     Active Substance: FUROSEMIDE
     Indication: Fluid retention
     Route: 048
  9. ALDACTONE [Concomitant]
     Active Substance: SPIRONOLACTONE
     Indication: Fluid retention
     Route: 048
  10. ZOFRAN [Concomitant]
     Active Substance: ONDANSETRON HYDROCHLORIDE
     Indication: Nausea
     Dosage: TAKE 1 TABLET (4 MG TOTAL) BY MOUTH EVERY 8 (EIGHT) HOURS AS NEEDED FOR NAUSEA OR VOMITING.
     Route: 048
  11. ZOFRAN [Concomitant]
     Active Substance: ONDANSETRON HYDROCHLORIDE
     Indication: Vomiting
  12. ZINCATE [Concomitant]
     Indication: Product used for unknown indication
     Dosage: ZINC SULFATE (ZINCATE) 50MG, ZINC (220MG)
     Route: 048
  13. NOVOLIN R [Concomitant]
     Active Substance: INSULIN HUMAN
     Indication: Product used for unknown indication
     Dosage: INJECT 10 UNITS UNDER THE SKIN DAILY BEFORE LUNCH. + SLIDING SCALE, UP TO AN ADDITIONAL 10 UNITS BAS
     Route: 058
  14. VITAMIN D2 [Concomitant]
     Active Substance: ERGOCALCIFEROL
     Indication: Product used for unknown indication
     Dosage: TAKE 1 CAPSULE (50,000 UNITS TOTAL) BY MOUTH EVERY 30 DAYS
     Route: 048
  15. TEMOVATE [Concomitant]
     Active Substance: CLOBETASOL PROPIONATE
     Indication: Product used for unknown indication
     Dosage: APPLY 1 APPLICATION TOPICALLY TWO TIMES A DAY AS NEEDED
     Route: 061
  16. COLACE [Concomitant]
     Active Substance: DOCUSATE SODIUM
     Indication: Product used for unknown indication
     Dosage: TAKE 1 CAPSULE (100MG TOTAL) BY MOUTH 2 TIMES A DAY
     Route: 048
  17. PEPCID [Concomitant]
     Active Substance: FAMOTIDINE
     Indication: Product used for unknown indication
     Route: 048
  18. HUMULIN N [Concomitant]
     Active Substance: INSULIN HUMAN
     Indication: Product used for unknown indication
     Dosage: 100 UNIT/ML, INJECTION, INJECTION 0.25ML (25UNITS TOTAL) UNDER THE SKIN 2 TIMES A DAY
     Route: 058
  19. OMEPRAZOLE [Concomitant]
     Active Substance: OMEPRAZOLE
     Indication: Product used for unknown indication
     Dosage: EVERY MORNING
     Route: 048
  20. ZOCOR [Concomitant]
     Active Substance: SIMVASTATIN
     Indication: Product used for unknown indication
     Dosage: EVERY EVENING
     Route: 048
  21. CHRONULAC [Concomitant]
     Active Substance: LACTULOSE
     Indication: Product used for unknown indication
     Dosage: 10GRAM/15ML, TAKE 30 ML (20GRAM TOTAL) BY MOUTH 3 TIMES A DAY
     Route: 048
  22. CARVEDILOL [Concomitant]
     Active Substance: CARVEDILOL
     Indication: Product used for unknown indication

REACTIONS (29)
  - Wrist fracture [Unknown]
  - Limb injury [Unknown]
  - Hepatic hydrothorax [Recovering/Resolving]
  - Hepatic encephalopathy [Unknown]
  - Condition aggravated [Unknown]
  - Generalised oedema [Unknown]
  - Gastric antral vascular ectasia [Unknown]
  - Fall [Unknown]
  - Head injury [Recovering/Resolving]
  - Rib fracture [Recovering/Resolving]
  - Portal hypertensive gastropathy [Unknown]
  - Oesophageal ulcer haemorrhage [Unknown]
  - Pleural effusion [Recovering/Resolving]
  - Ascites [Recovering/Resolving]
  - Diverticulum intestinal [Unknown]
  - Colorectal adenoma [Unknown]
  - Polyp [Unknown]
  - Varices oesophageal [Unknown]
  - Metabolic syndrome [Unknown]
  - Gastrointestinal angiodysplasia [Unknown]
  - Anaemia [Unknown]
  - Mobility decreased [Not Recovered/Not Resolved]
  - Muscular weakness [Unknown]
  - Fatigue [Unknown]
  - Asthenia [Unknown]
  - Constipation [Unknown]
  - Back pain [Unknown]
  - Arthralgia [Unknown]
  - Therapy interrupted [Unknown]

NARRATIVE: CASE EVENT DATE: 20221201
